FAERS Safety Report 5063769-1 (Version None)
Quarter: 2006Q3

REPORT INFORMATION
  Report Type: 
  Country: None (occurrence: None)
  Receive Date: 20060724
  Receipt Date: 20060713
  Transmission Date: 20061208
  Serious: Yes (Other)
  Sender: FDA-Public Use
  Company Number: 2006087807

PATIENT
  Age: 71 Year
  Sex: Female

DRUGS (4)
  1. NEURONTIN [Suspect]
     Indication: DIABETIC NEUROPATHY
     Dosage: 300 MG (300 MG, 1 IN 1 D)
  2. GLUCOPHAGE [Concomitant]
  3. LOPRESSOR [Concomitant]
  4. LORAZEPAM [Concomitant]

REACTIONS (3)
  - ANAPHYLACTIC REACTION [None]
  - ANXIETY [None]
  - THROAT TIGHTNESS [None]
